FAERS Safety Report 10180257 (Version 2)
Quarter: 2014Q3

REPORT INFORMATION
  Report Type: Spontaneous
  Country: IT (occurrence: None)
  Receive Date: 20140515
  Receipt Date: 20140805
  Transmission Date: 20150326
  Serious: Yes (Hospitalization)
  Sender: FDA-Public Use
  Company Number: AUR-APL-2014-05636

PATIENT
  Age: 34 Year
  Sex: Male

DRUGS (4)
  1. SEROQUEL [Concomitant]
     Active Substance: QUETIAPINE FUMARATE
     Dosage: 5 DF, TOTAL, ORAL
     Route: 048
     Dates: start: 20140416, end: 20140416
  2. DEPAKIN [Concomitant]
     Active Substance: VALPROATE SODIUM
     Dosage: 5 DF, TOTAL, ORAL?
     Route: 048
     Dates: start: 20140416, end: 20140416
  3. LEXOTAN [Concomitant]
     Active Substance: BROMAZEPAM
     Dosage: 60 ML, TOTAL, ORAL
     Route: 048
     Dates: start: 20140416, end: 20140416
  4. SERTRALINE [Suspect]
     Active Substance: SERTRALINE HYDROCHLORIDE
     Indication: PRODUCT USED FOR UNKNOWN INDICATION
     Dosage: 500 MG, TOTAL, ORAL
     Route: 048
     Dates: start: 20140416, end: 20140416

REACTIONS (7)
  - Bradyphrenia [None]
  - Drug abuse [None]
  - Intentional self-injury [None]
  - Hypotension [None]
  - Rhabdomyolysis [None]
  - Bradykinesia [None]
  - Sopor [None]

NARRATIVE: CASE EVENT DATE: 20140416
